FAERS Safety Report 21021647 (Version 3)
Quarter: 2022Q4

REPORT INFORMATION
  Report Type: Spontaneous
  Country: US (occurrence: US)
  Receive Date: 20220629
  Receipt Date: 20221202
  Transmission Date: 20230113
  Serious: No
  Sender: FDA-Public Use
  Company Number: US-GLAXOSMITHKLINE-US2022AMR098851

PATIENT
  Sex: Female

DRUGS (1)
  1. ZEJULA [Suspect]
     Active Substance: NIRAPARIB
     Indication: Metastases to lymph nodes
     Dosage: 300 MG, QD

REACTIONS (8)
  - Headache [Recovered/Resolved]
  - Nausea [Not Recovered/Not Resolved]
  - Photosensitivity reaction [Unknown]
  - Condition aggravated [Unknown]
  - Burning sensation [Unknown]
  - Paraesthesia [Unknown]
  - Weight decreased [Unknown]
  - Off label use [Unknown]
